FAERS Safety Report 24642138 (Version 1)
Quarter: 2024Q4

REPORT INFORMATION
  Report Type: Spontaneous
  Country: US (occurrence: None)
  Receive Date: 20241119
  Receipt Date: 20241119
  Transmission Date: 20250115
  Serious: Yes (Other)
  Sender: Public
  Company Number: None

PATIENT
  Age: 73 Year
  Sex: Female
  Weight: 60.3 kg

DRUGS (13)
  1. CITALOPRAM [Suspect]
     Active Substance: CITALOPRAM
     Indication: Anxiety
     Dosage: OTHER QUANTITY : 1 TABLET(S);?FREQUENCY : AT BEDTIME;?
     Route: 048
     Dates: start: 20241112, end: 20241112
  2. DILTIAZEM [Concomitant]
     Active Substance: DILTIAZEM
  3. VITAMINS [Concomitant]
     Active Substance: VITAMINS
  4. CALCIUM [Concomitant]
     Active Substance: CALCIUM
  5. FISH OIL [Concomitant]
     Active Substance: FISH OIL
  6. CRANBERRY [Concomitant]
     Active Substance: CRANBERRY
  7. nac [Concomitant]
  8. BEE POLLEN [Concomitant]
     Active Substance: BEE POLLEN
  9. ROYAL JELLY [Concomitant]
     Active Substance: ROYAL JELLY
  10. COENZYME Q10 [Concomitant]
     Active Substance: DIETARY SUPPLEMENT\UBIDECARENONE
  11. LYSINE [Concomitant]
     Active Substance: LYSINE
  12. NM-6603 [Concomitant]
     Active Substance: NM-6603
  13. gotu kola/pycnogenol [Concomitant]

REACTIONS (6)
  - Vertigo [None]
  - Nausea [None]
  - Anxiety [None]
  - Paraesthesia [None]
  - Tremor [None]
  - Blood pressure decreased [None]

NARRATIVE: CASE EVENT DATE: 20241112
